FAERS Safety Report 8044448-5 (Version None)
Quarter: 2012Q1

REPORT INFORMATION
  Report Type: 
  Country: None (occurrence: None)
  Receive Date: 20120113
  Receipt Date: 20120103
  Transmission Date: 20120608
  Serious: Yes (Death)
  Sender: FDA-Public Use
  Company Number: US-SHIONOGI, INC-2012000045

PATIENT
  Age: 26 Year
  Sex: Female

DRUGS (6)
  1. CLONAZEPAM [Suspect]
     Dosage: UNK
  2. NISOLDIPINE ER [Suspect]
     Dosage: UNK
  3. VERAPAMIL HYDROCHLORIDE [Suspect]
     Dosage: UNK
  4. GABAPENTIN [Suspect]
     Dosage: UNK
  5. TRICYCLIC ANTIDEPRESSANTS [Suspect]
     Dosage: UNK
  6. BUTALBITAL ACETAMINOPHEN AND CAFFEINE [Suspect]
     Dosage: UNK

REACTIONS (1)
  - COMPLETED SUICIDE [None]
